FAERS Safety Report 4859933-4 (Version None)
Quarter: 2005Q4

REPORT INFORMATION
  Report Type: 
  Country: None (occurrence: None)
  Receive Date: 20051215
  Receipt Date: 20051130
  Transmission Date: 20060501
  Serious: Yes (Other)
  Sender: FDA-Public Use
  Company Number: GXKR2005BR01884

PATIENT
  Age: 37 Year
  Sex: Female
  Weight: 68 kg

DRUGS (4)
  1. AMOXICILLIN TRIHYDRATE [Suspect]
     Indication: ENDODONTIC PROCEDURE
     Dosage: 500 MG, TID, ORAL
     Route: 048
  2. DICLOFENAC (DICLOFENAC) [Concomitant]
  3. PROPRANOLOL [Concomitant]
  4. DIAZEPAN (ASPARAGINE, DIAZEPAM, LEVOGLUTAMIDE, PYRIDOXINE, SERINE PHOS [Concomitant]

REACTIONS (5)
  - ABDOMINAL PAIN [None]
  - ABORTION [None]
  - COAGULOPATHY [None]
  - DRUG EXPOSURE DURING PREGNANCY [None]
  - VAGINAL HAEMORRHAGE [None]
